FAERS Safety Report 22211575 (Version 1)
Quarter: 2023Q2

REPORT INFORMATION
  Report Type: Spontaneous
  Country: US (occurrence: None)
  Receive Date: 20230413
  Receipt Date: 20230413
  Transmission Date: 20230722
  Serious: Yes (Hospitalization)
  Sender: FDA-Public Use
  Company Number: None

PATIENT
  Age: 72 Year
  Sex: Male
  Weight: 69.85 kg

DRUGS (14)
  1. SORAFENIB [Suspect]
     Active Substance: SORAFENIB
     Indication: Hepatic cancer
     Dosage: FREQUENCY : TWICE A DAY;?
     Route: 048
     Dates: start: 202302
  2. ESCITALOPRAM [Concomitant]
     Active Substance: ESCITALOPRAM OXALATE
  3. GABAPENTIN [Concomitant]
     Active Substance: GABAPENTIN
  4. LACTULOSE [Concomitant]
     Active Substance: LACTULOSE
  5. NARCAN [Concomitant]
     Active Substance: NALOXONE HYDROCHLORIDE
  6. OXYCODONE [Concomitant]
     Active Substance: OXYCODONE
  7. PROPRANOLOL [Concomitant]
     Active Substance: PROPRANOLOL HYDROCHLORIDE
  8. SEROQUEL [Concomitant]
     Active Substance: QUETIAPINE FUMARATE
  9. TAMSULOSIN [Concomitant]
     Active Substance: TAMSULOSIN
  10. TOPAMAX [Concomitant]
     Active Substance: TOPIRAMATE
  11. VITAMIN B6 [Concomitant]
     Active Substance: PYRIDOXINE HYDROCHLORIDE
  12. VITAMIN B12 [Concomitant]
     Active Substance: CYANOCOBALAMIN
  13. FOLATE SODIUM [Concomitant]
     Active Substance: FOLATE SODIUM
  14. XTAMPZA ER [Concomitant]
     Active Substance: OXYCODONE

REACTIONS (2)
  - Haematemesis [None]
  - Oesophageal haemorrhage [None]

NARRATIVE: CASE EVENT DATE: 20230412
